FAERS Safety Report 8594596-6 (Version None)
Quarter: 2012Q3

REPORT INFORMATION
  Report Type: 
  Country: None (occurrence: None)
  Receive Date: 20120801
  Receipt Date: 20120716
  Transmission Date: 20120928
  Serious: Yes (Hospitalization)
  Sender: FDA-Public Use
  Company Number: JPI-P-022791

PATIENT
  Age: 41 Year
  Sex: Male

DRUGS (1)
  1. XYREM [Suspect]
     Indication: CATAPLEXY
     Dosage: 4.5 GM (2.25 GM, 2 IN 1 D), ORAL
     Route: 048
     Dates: start: 20120516, end: 20120517

REACTIONS (7)
  - SOMNOLENCE [None]
  - LOWER LIMB FRACTURE [None]
  - FEELING ABNORMAL [None]
  - INSOMNIA [None]
  - HYPERPHAGIA [None]
  - INCORRECT DOSE ADMINISTERED [None]
  - IMPAIRED DRIVING ABILITY [None]
